FAERS Safety Report 7617090-5 (Version None)
Quarter: 2011Q3

REPORT INFORMATION
  Report Type: 
  Country: None (occurrence: None)
  Receive Date: 20110718
  Receipt Date: 20110705
  Transmission Date: 20111222
  Serious: Yes (Hospitalization, Other)
  Sender: FDA-Public Use
  Company Number: US-ELI_LILLY_AND_COMPANY-US201105005129

PATIENT
  Sex: Female
  Weight: 58.957 kg

DRUGS (30)
  1. MAG-OX [Concomitant]
  2. SIMVASTATIN [Concomitant]
  3. PENTOXIFYLLINE [Concomitant]
     Indication: CARDIOVASCULAR DISORDER
  4. DEMADEX [Concomitant]
  5. LANOXIN [Concomitant]
  6. LASIX [Concomitant]
  7. FORTEO [Suspect]
     Indication: OSTEOPOROSIS
     Dosage: 20 UG, QD
     Route: 058
     Dates: start: 20110401, end: 20110415
  8. HUMALOG [Concomitant]
  9. MYCOSTATIN [Concomitant]
  10. NITROSTAT [Concomitant]
  11. PRILOSEC [Concomitant]
  12. KLOR-CON [Concomitant]
  13. ZOFRAN [Concomitant]
  14. LANTUS [Concomitant]
  15. BROVANA [Concomitant]
  16. DEMEROL [Concomitant]
  17. LEXAPRO [Concomitant]
  18. LOPRESSOR [Concomitant]
  19. INSULIN [Concomitant]
  20. GLUCOPHAGE [Concomitant]
  21. VASOTEC [Concomitant]
  22. XANAX [Concomitant]
  23. FORTEO [Suspect]
     Dosage: 20 UG, QD
     Route: 058
     Dates: start: 20110608
  24. METFORMIN HCL [Concomitant]
  25. ATENOLOL [Concomitant]
  26. DULCOLAX [Concomitant]
  27. MIRALAX [Concomitant]
  28. NORCO [Concomitant]
  29. LOVENOX [Concomitant]
  30. COUMADIN [Concomitant]

REACTIONS (4)
  - OSTEOMYELITIS [None]
  - NECROSIS [None]
  - FEELING ABNORMAL [None]
  - HOSPITALISATION [None]
